FAERS Safety Report 23590866 (Version 1)
Quarter: 2024Q1

REPORT INFORMATION
  Report Type: Other
  Country: CN (occurrence: None)
  Receive Date: 20240304
  Receipt Date: 20240304
  Transmission Date: 20240410
  Serious: Yes (Other)
  Sender: FDA-Public Use
  Company Number: CN-ROCHE-3516740

PATIENT

DRUGS (5)
  1. RITUXIMAB [Suspect]
     Active Substance: RITUXIMAB
     Indication: Non-Hodgkin^s lymphoma refractory
     Dosage: DAY 0
     Route: 042
  2. MITOXANTRONE HYDROCHLORIDE [Suspect]
     Active Substance: MITOXANTRONE HYDROCHLORIDE
     Indication: Non-Hodgkin^s lymphoma refractory
     Dosage: DOSE LEVELS (DL) 1
     Route: 065
  3. MITOXANTRONE HYDROCHLORIDE [Suspect]
     Active Substance: MITOXANTRONE HYDROCHLORIDE
     Dosage: DL2
     Route: 065
  4. GEMCITABINE [Suspect]
     Active Substance: GEMCITABINE
     Indication: Non-Hodgkin^s lymphoma refractory
     Dosage: ON DAY 1 AND 8
     Route: 065
  5. VINORELBINE [Suspect]
     Active Substance: VINORELBINE TARTRATE
     Indication: Non-Hodgkin^s lymphoma refractory
     Dosage: ON DAY 1 AND 8
     Route: 065

REACTIONS (7)
  - Neutropenia [Unknown]
  - Leukopenia [Unknown]
  - Thrombocytopenia [Unknown]
  - Anaemia [Unknown]
  - Febrile neutropenia [Unknown]
  - Pneumonia [Unknown]
  - Hypokalaemia [Unknown]
